FAERS Safety Report 8838273 (Version 1)
Quarter: 2012Q4

REPORT INFORMATION
  Report Type: 
  Country: GR (occurrence: GR)
  Receive Date: 20121012
  Receipt Date: 20121012
  Transmission Date: 20130627
  Serious: Yes (Other)
  Sender: FDA-Public Use
  Company Number: GR-ROCHE-1140003

PATIENT
  Age: 34 Year
  Sex: Female

DRUGS (3)
  1. ROACTEMRA [Suspect]
     Indication: PSORIATIC ARTHROPATHY
     Dosage: reintroduced
     Route: 065
  2. ROACTEMRA [Suspect]
     Indication: RHEUMATOID ARTHRITIS
     Route: 065
  3. CORTISONE [Concomitant]
     Route: 065

REACTIONS (8)
  - Hypoglycaemia [Not Recovered/Not Resolved]
  - Gastrointestinal disorder [Unknown]
  - Dizziness [Recovered/Resolved]
  - Vomiting [Recovered/Resolved]
  - Asthenia [Recovered/Resolved]
  - Headache [Recovered/Resolved]
  - Diarrhoea [Recovered/Resolved]
  - Tachycardia [Recovered/Resolved]
